FAERS Safety Report 24806698 (Version 1)
Quarter: 2025Q1

REPORT INFORMATION
  Report Type: Spontaneous
  Country: CA (occurrence: CA)
  Receive Date: 20250104
  Receipt Date: 20250104
  Transmission Date: 20250409
  Serious: Yes (Other)
  Sender: CELLTRION
  Company Number: CA-PFIZER INC-202400335564

PATIENT

DRUGS (4)
  1. INFLECTRA [Suspect]
     Active Substance: INFLIXIMAB-DYYB
     Indication: Colitis ulcerative
     Route: 042
     Dates: start: 20241031
  2. INFLECTRA [Suspect]
     Active Substance: INFLIXIMAB-DYYB
     Route: 042
     Dates: start: 20241227
  3. METHOTREXATE [Concomitant]
     Active Substance: METHOTREXATE
     Route: 065
  4. CANDESARTAN [Concomitant]
     Active Substance: CANDESARTAN

REACTIONS (4)
  - Loss of consciousness [Recovering/Resolving]
  - Aortic disorder [Recovering/Resolving]
  - Fatigue [Recovering/Resolving]
  - Blood electrolytes decreased [Recovering/Resolving]

NARRATIVE: CASE EVENT DATE: 20241225
